FAERS Safety Report 7403655-2 (Version None)
Quarter: 2011Q2

REPORT INFORMATION
  Report Type: 
  Country: None (occurrence: None)
  Receive Date: 20110401
  Receipt Date: 20110321
  Transmission Date: 20111010
  Serious: Yes (Other)
  Sender: FDA-Public Use
  Company Number: 2011MA002878

PATIENT
  Age: 76 Year
  Sex: Female

DRUGS (18)
  1. BETAMETHASONE [Concomitant]
  2. SENNA [Concomitant]
  3. FUROSEMIDE [Concomitant]
  4. CALCIHEW [Concomitant]
  5. OLANZAPINE [Concomitant]
  6. SPIRONOLACTONE [Suspect]
     Dates: start: 20110218
  7. LOFEPRAMINE [Concomitant]
  8. ZOPICLONE [Concomitant]
  9. MACROGOL [Concomitant]
  10. DEPO-MEDROL [Concomitant]
  11. VERAPAMIL HYDROCHLORIDE [Concomitant]
  12. SALMETEROL [Concomitant]
  13. TRAVOPROST [Concomitant]
  14. ALBUTEROL SULFATE AUTOHALER [Concomitant]
  15. GLYCEROL 2.6% [Concomitant]
  16. PILOCARPINE [Concomitant]
  17. TIOTROPIUM BROMIDE [Concomitant]
  18. VALSARTAN [Concomitant]

REACTIONS (2)
  - GLOMERULAR FILTRATION RATE DECREASED [None]
  - CARDIAC FAILURE CONGESTIVE [None]
